FAERS Safety Report 25871029 (Version 2)
Quarter: 2025Q4

REPORT INFORMATION
  Report Type: Report from Study
  Country: EU (occurrence: EU)
  Receive Date: 20251001
  Receipt Date: 20251027
  Transmission Date: 20260117
  Serious: Yes (Other)
  Sender: TEVA
  Company Number: EU-TEVA-VS-3376861

PATIENT
  Age: 42 Year
  Sex: Male

DRUGS (3)
  1. BORTEZOMIB [Suspect]
     Active Substance: BORTEZOMIB
     Indication: Thrombotic thrombocytopenic purpura
     Route: 065
  2. RITUXIMAB [Concomitant]
     Active Substance: RITUXIMAB
     Indication: Thrombotic thrombocytopenic purpura
     Route: 065
  3. CAPLACIZUMAB [Concomitant]
     Active Substance: CAPLACIZUMAB
     Indication: Thrombotic thrombocytopenic purpura
     Route: 065

REACTIONS (2)
  - Pneumonia [Unknown]
  - Paraesthesia [Unknown]
